FAERS Safety Report 16966618 (Version 3)
Quarter: 2019Q4

REPORT INFORMATION
  Report Type: Spontaneous
  Country: CA (occurrence: CA)
  Receive Date: 20191028
  Receipt Date: 20191203
  Transmission Date: 20200122
  Serious: No
  Sender: FDA-Public Use
  Company Number: CA-TOLMAR, INC.-19CA000659

PATIENT

DRUGS (1)
  1. ELIGARD [Suspect]
     Active Substance: LEUPROLIDE ACETATE
     Indication: PRODUCT USED FOR UNKNOWN INDICATION
     Dosage: 45 MG, Q6MONTHS
     Route: 065
     Dates: start: 201910

REACTIONS (3)
  - Syringe issue [None]
  - Device leakage [None]
  - Intercepted product preparation error [None]

NARRATIVE: CASE EVENT DATE: 20191009
